FAERS Safety Report 6732564-7 (Version None)
Quarter: 2010Q2

REPORT INFORMATION
  Report Type: 
  Country: None (occurrence: None)
  Receive Date: 20100519
  Receipt Date: 20100507
  Transmission Date: 20101027
  Serious: Yes (Congenital Anomaly, Other)
  Sender: FDA-Public Use
  Company Number: FR-GILEAD-2004-0007737

PATIENT
  Sex: Male
  Weight: 3.37 kg

DRUGS (8)
  1. VIREAD [Suspect]
     Indication: HIV INFECTION
     Route: 064
     Dates: start: 20040606, end: 20040910
  2. TRUVADA [Suspect]
     Indication: HIV INFECTION
     Route: 064
     Dates: start: 20040601, end: 20040720
  3. VIRACEPT [Suspect]
     Indication: HIV INFECTION
     Route: 064
     Dates: start: 20040130, end: 20040601
  4. LAMIVUDINE [Suspect]
     Indication: HIV INFECTION
     Route: 064
     Dates: start: 20040130, end: 20040601
  5. KALETRA [Suspect]
     Indication: HIV INFECTION
     Route: 064
     Dates: start: 20040601
  6. RETROVIR [Suspect]
     Indication: HIV INFECTION
     Route: 064
     Dates: start: 20040601, end: 20040720
  7. INDINIVIR SULFATE [Suspect]
     Indication: HIV INFECTION
     Route: 062
     Dates: start: 20040601, end: 20040720
  8. FOLATE [Concomitant]
     Route: 064

REACTIONS (5)
  - ABDOMINAL DISTENSION [None]
  - ABDOMINAL HERNIA [None]
  - CARDIAC MURMUR [None]
  - CRYPTORCHISM [None]
  - MATERNAL DRUGS AFFECTING FOETUS [None]
